FAERS Safety Report 23372656 (Version 1)
Quarter: 2024Q1

REPORT INFORMATION
  Report Type: Spontaneous
  Country: IE (occurrence: IE)
  Receive Date: 20240105
  Receipt Date: 20240105
  Transmission Date: 20240410
  Serious: Yes (Hospitalization, Other)
  Sender: FDA-Public Use
  Company Number: IE-002147023-PHHY2016IE178806

PATIENT
  Age: 75 Year
  Sex: Female

DRUGS (3)
  1. DICLOFENAC [Suspect]
     Active Substance: DICLOFENAC
     Indication: Product used for unknown indication
     Dosage: UNK
     Route: 065
  2. ACETAMINOPHEN [Suspect]
     Active Substance: ACETAMINOPHEN
     Indication: Product used for unknown indication
     Dosage: UNK
     Route: 065
  3. ZOPICLONE [Suspect]
     Active Substance: ZOPICLONE
     Indication: Product used for unknown indication
     Dosage: UNK
     Route: 065

REACTIONS (18)
  - Gastrointestinal haemorrhage [Recovered/Resolved]
  - Rhabdomyolysis [Recovered/Resolved]
  - Lactic acidosis [Recovered/Resolved]
  - Atrial fibrillation [Recovered/Resolved]
  - Pancytopenia [Recovered/Resolved]
  - Loss of consciousness [Recovered/Resolved]
  - Cardiac contractility decreased [Recovered/Resolved]
  - Aspiration [Recovered/Resolved]
  - Hypothermia [Recovered/Resolved]
  - Electrocardiogram T wave inversion [Recovered/Resolved]
  - Bradycardia [Recovered/Resolved]
  - Blood creatine phosphokinase increased [Unknown]
  - Activated partial thromboplastin time abnormal [Unknown]
  - Drug level increased [Unknown]
  - Overdose [Unknown]
  - Blood glucose abnormal [Unknown]
  - International normalised ratio abnormal [Unknown]
  - Blood potassium abnormal [Unknown]
